FAERS Safety Report 25768014 (Version 1)
Quarter: 2025Q3

REPORT INFORMATION
  Report Type: Spontaneous
  Country: AU (occurrence: AU)
  Receive Date: 20250905
  Receipt Date: 20250905
  Transmission Date: 20251021
  Serious: Yes (Other)
  Sender: ELI LILLY AND COMPANY
  Company Number: AU-ELI_LILLY_AND_COMPANY-AU202509001196

PATIENT
  Age: 42 Year
  Sex: Female

DRUGS (1)
  1. MOUNJARO [Suspect]
     Active Substance: TIRZEPATIDE
     Indication: Product used for unknown indication
     Route: 065

REACTIONS (10)
  - Syncope [Unknown]
  - Blood pressure increased [Unknown]
  - Blood glucose decreased [Unknown]
  - Tremor [Unknown]
  - Feeling cold [Unknown]
  - Dizziness [Unknown]
  - Cough [Unknown]
  - Vomiting [Unknown]
  - Off label use of device [Unknown]
  - Extra dose administered [Unknown]

NARRATIVE: CASE EVENT DATE: 20250901
